FAERS Safety Report 25424686 (Version 1)
Quarter: 2025Q2

REPORT INFORMATION
  Report Type: Spontaneous
  Country: US (occurrence: None)
  Receive Date: 20250605
  Receipt Date: 20250605
  Transmission Date: 20250716
  Serious: Yes (Disabling, Other)
  Sender: FDA-CTU
  Company Number: None

PATIENT

DRUGS (1)
  1. ZOLOFT [Suspect]
     Active Substance: SERTRALINE HYDROCHLORIDE

REACTIONS (19)
  - Adverse drug reaction [None]
  - Withdrawal syndrome [None]
  - Pain [None]
  - Eye disorder [None]
  - Tachyphrenia [None]
  - Aphasia [None]
  - Asthenia [None]
  - Alopecia [None]
  - Gastrointestinal disorder [None]
  - Diarrhoea [None]
  - Weight decreased [None]
  - Skin disorder [None]
  - Anxiety [None]
  - Depressed mood [None]
  - Cognitive disorder [None]
  - Distractibility [None]
  - Anxiety [None]
  - Exercise tolerance decreased [None]
  - Memory impairment [None]
